FAERS Safety Report 12520899 (Version 1)
Quarter: 2016Q2

REPORT INFORMATION
  Report Type: Spontaneous
  Country: US (occurrence: None)
  Receive Date: 20160630
  Receipt Date: 20160630
  Transmission Date: 20160815
  Serious: No
  Sender: FDA-Public Use
  Company Number: None

PATIENT
  Age: 9 Year
  Sex: Male
  Weight: 28.49 kg

DRUGS (1)
  1. METHYLPHENIDATE HCL ER (LA) 40MG 1 CAPSULE QD ACTAVIS [Suspect]
     Active Substance: METHYLPHENIDATE HYDROCHLORIDE
     Indication: ATTENTION DEFICIT/HYPERACTIVITY DISORDER
     Dosage: 1 CAPSULE QD ORALLY
     Route: 048
     Dates: start: 20160310, end: 20160425

REACTIONS (5)
  - Abnormal behaviour [None]
  - Tearfulness [None]
  - Disturbance in attention [None]
  - Restlessness [None]
  - Condition aggravated [None]

NARRATIVE: CASE EVENT DATE: 20160310
